FAERS Safety Report 12348423 (Version 1)
Quarter: 2016Q2

REPORT INFORMATION
  Report Type: Other
  Country: FR (occurrence: FR)
  Receive Date: 20160509
  Receipt Date: 20160509
  Transmission Date: 20160815
  Serious: Yes (Hospitalization)
  Sender: FDA-Public Use
  Company Number: FR-MYLANLABS-2016M1018797

PATIENT

DRUGS (1)
  1. ACICLOVIR MYLAN 250 MG, POWDER FOR SOLUTION FOR INJECTION [Suspect]
     Active Substance: ACYCLOVIR
     Indication: HERPES ZOSTER MENINGOENCEPHALITIS
     Dosage: 180 MG, QD
     Route: 042
     Dates: start: 20160217, end: 20160218

REACTIONS (2)
  - Infusion site swelling [None]
  - Infusion site extravasation [Recovered/Resolved]

NARRATIVE: CASE EVENT DATE: 20160218
